FAERS Safety Report 7876498-3 (Version None)
Quarter: 2011Q4

REPORT INFORMATION
  Report Type: 
  Country: None (occurrence: None)
  Receive Date: 20111031
  Receipt Date: 20111025
  Transmission Date: 20120403
  Serious: Yes (Hospitalization)
  Sender: FDA-Public Use
  Company Number: US-AMGEN-USASP2011055123

PATIENT
  Age: 46 Year
  Sex: Female

DRUGS (6)
  1. ENBREL [Suspect]
     Indication: RHEUMATOID ARTHRITIS
     Dosage: 50 MG, QWK
     Dates: start: 20110801
  2. FOLIC ACID [Concomitant]
     Dosage: 1 MG, QD
  3. CYMBALTA [Concomitant]
     Dosage: 1 MG, QD
  4. METHOTREXATE [Concomitant]
     Dosage: 9 MG, QWK
  5. RISPERDAL [Concomitant]
     Dosage: 1 MG, QD
  6. PREDNISONE [Concomitant]
     Dosage: 2 MG, QD

REACTIONS (2)
  - CYST RUPTURE [None]
  - STAPHYLOCOCCAL INFECTION [None]
